FAERS Safety Report 6251807-X (Version None)
Quarter: 2009Q2

REPORT INFORMATION
  Report Type: 
  Country: None (occurrence: None)
  Receive Date: 20090630
  Receipt Date: 20090618
  Transmission Date: 20091009
  Serious: Yes (Other)
  Sender: FDA-Public Use
  Company Number: DE-MYLANLABS-2009S1010208

PATIENT
  Age: 62 Year
  Sex: Male

DRUGS (1)
  1. METFORMIN DURA [Suspect]
     Indication: DRUG USE FOR UNKNOWN INDICATION
     Route: 048

REACTIONS (2)
  - HYPERSENSITIVITY [None]
  - RASH GENERALISED [None]
